FAERS Safety Report 19672411 (Version 2)
Quarter: 2022Q3

REPORT INFORMATION
  Report Type: Report from Study
  Country: JP (occurrence: JP)
  Receive Date: 20210808
  Receipt Date: 20220920
  Transmission Date: 20221026
  Serious: Yes (Other)
  Sender: FDA-Public Use
  Company Number: JP-JNJFOC-A-CH2018-184342

PATIENT
  Age: 69 Year
  Sex: Female
  Weight: 55.2 kg

DRUGS (30)
  1. UPTRAVI [Suspect]
     Active Substance: SELEXIPAG
     Indication: Pulmonary arterial hypertension
     Dosage: 0.6 MG, BID
     Route: 048
     Dates: start: 20180831, end: 20181122
  2. UPTRAVI [Suspect]
     Active Substance: SELEXIPAG
     Dosage: 0.2 MG, BID
     Route: 048
     Dates: start: 20180604, end: 20180622
  3. UPTRAVI [Suspect]
     Active Substance: SELEXIPAG
     Dosage: 0.4 MG, BID
     Route: 048
     Dates: start: 20180623, end: 20180830
  4. UPTRAVI [Suspect]
     Active Substance: SELEXIPAG
     Dosage: 0.4 MG, BID
     Route: 048
     Dates: start: 20181123, end: 20190131
  5. UPTRAVI [Suspect]
     Active Substance: SELEXIPAG
     Dosage: 0.6 MG, BID
     Route: 048
     Dates: start: 20190201, end: 20190620
  6. UPTRAVI [Suspect]
     Active Substance: SELEXIPAG
     Dosage: 0.8 MG, BID
     Route: 048
     Dates: start: 20190621, end: 20191003
  7. UPTRAVI [Suspect]
     Active Substance: SELEXIPAG
     Dosage: 1.0 MG, BID
     Route: 048
     Dates: start: 20191004, end: 20191008
  8. UPTRAVI [Suspect]
     Active Substance: SELEXIPAG
     Dosage: 0.8 MG, BID
     Route: 048
     Dates: start: 20191009, end: 20191128
  9. UPTRAVI [Suspect]
     Active Substance: SELEXIPAG
     Dosage: 1.8 MG, QD
     Route: 048
     Dates: start: 20191129, end: 20200130
  10. UPTRAVI [Suspect]
     Active Substance: SELEXIPAG
     Dosage: 0.8 MG, BID
     Route: 048
     Dates: start: 20200131, end: 20200604
  11. UPTRAVI [Suspect]
     Active Substance: SELEXIPAG
     Dosage: 1.4 MG, QD
     Route: 048
     Dates: start: 20200605, end: 20200730
  12. UPTRAVI [Suspect]
     Active Substance: SELEXIPAG
     Route: 048
     Dates: start: 20200731
  13. OPSUMIT [Suspect]
     Active Substance: MACITENTAN
     Indication: Pulmonary arterial hypertension
     Dosage: 10 MG, QD
     Route: 048
  14. ADCIRCA [Concomitant]
     Active Substance: TADALAFIL
     Indication: Pulmonary arterial hypertension
     Dosage: 40 MG, QD
  15. AZOSEMIDE [Concomitant]
     Active Substance: AZOSEMIDE
     Indication: Cardiac failure
     Dosage: 30 MG, QD
  16. URSO [Concomitant]
     Active Substance: URSODIOL
     Indication: Cholangitis
     Dosage: 600 MG, QD
  17. CRESTOR [Concomitant]
     Active Substance: ROSUVASTATIN CALCIUM
     Indication: Dyslipidaemia
     Dosage: 2.5 MG, QD
  18. FLUNITRAZEPAM [Concomitant]
     Active Substance: FLUNITRAZEPAM
     Indication: Insomnia
     Dosage: 1 MG, QD
  19. PREDONINE [Concomitant]
     Active Substance: PREDNISOLONE
     Indication: Scleroderma
     Dosage: 5 MG, QD
  20. PREDONINE [Concomitant]
     Active Substance: PREDNISOLONE
     Dosage: UNK
  21. ALFAROL [Concomitant]
     Active Substance: ALFACALCIDOL
     Indication: Osteoporosis
     Dosage: 0.5 UG, QD
  22. BONALON [Concomitant]
     Active Substance: ALENDRONATE SODIUM
     Indication: Osteoporosis
     Dosage: UNK
  23. LOPEMIN [Concomitant]
     Indication: Diarrhoea
     Dosage: 2 MG, QD
     Dates: start: 20181116, end: 20200410
  24. LYRICA [Concomitant]
     Active Substance: PREGABALIN
     Dosage: UNK
  25. LYRICA [Concomitant]
     Active Substance: PREGABALIN
  26. ICOSAPENT ETHYL [Concomitant]
     Active Substance: ICOSAPENT ETHYL
     Dosage: 1800 MG, QD
  27. CELECOXIB [Concomitant]
     Active Substance: CELECOXIB
     Dosage: UNK
  28. CELECOXIB [Concomitant]
     Active Substance: CELECOXIB
  29. REBAMIPIDE [Concomitant]
     Active Substance: REBAMIPIDE
     Indication: Prophylaxis
     Dosage: UNK
  30. REBAMIPIDE [Concomitant]
     Active Substance: REBAMIPIDE

REACTIONS (5)
  - Cardiac failure high output [Recovered/Resolved]
  - Hypoxia [Recovered/Resolved]
  - Diarrhoea [Recovering/Resolving]
  - Headache [Recovering/Resolving]
  - Pain [Recovering/Resolving]

NARRATIVE: CASE EVENT DATE: 20181116
